FAERS Safety Report 8956620 (Version 2)
Quarter: 2013Q1

REPORT INFORMATION
  Report Type: Spontaneous
  Country: JP (occurrence: JP)
  Receive Date: 20121210
  Receipt Date: 20130102
  Transmission Date: 20140127
  Serious: Yes (Hospitalization)
  Sender: FDA-Public Use
  Company Number: JP-ASTRAZENECA-2012SE91072

PATIENT
  Age: 70 Year
  Sex: Male

DRUGS (3)
  1. NEXIUM [Suspect]
     Indication: ABDOMINAL DISCOMFORT
     Route: 048
     Dates: start: 201209, end: 201211
  2. HANGESHASHINTO [Suspect]
     Route: 048
     Dates: start: 201209, end: 201211
  3. GASLON N [Concomitant]
     Route: 048
     Dates: start: 201209, end: 201211

REACTIONS (1)
  - Interstitial lung disease [Recovered/Resolved]
